FAERS Safety Report 12383447 (Version 2)
Quarter: 2016Q2

REPORT INFORMATION
  Report Type: Report from Study
  Country: BE (occurrence: BE)
  Receive Date: 20160518
  Receipt Date: 20160525
  Transmission Date: 20160815
  Serious: Yes (Hospitalization)
  Sender: FDA-Public Use
  Company Number: BE-TAKEDA-2015TUS017998

PATIENT
  Age: 26 Year
  Sex: Female

DRUGS (12)
  1. VEDOLIZUMAB [Suspect]
     Active Substance: VEDOLIZUMAB
     Indication: CROHN^S DISEASE
     Dosage: 300 MG, UNK
     Route: 042
     Dates: start: 20120717, end: 20151201
  2. PARACETAMOL [Concomitant]
     Active Substance: ACETAMINOPHEN
     Indication: CROHN^S DISEASE
     Dosage: 500 MG, UNK
     Route: 048
     Dates: start: 2011
  3. LEVONORGESTREL. [Concomitant]
     Active Substance: LEVONORGESTREL
     Indication: CONTRACEPTION
     Dosage: UNK, QD
     Route: 015
     Dates: start: 200811
  4. NEXIAM                             /01479302/ [Concomitant]
     Active Substance: ESOMEPRAZOLE MAGNESIUM
     Indication: ADVERSE EVENT
     Dosage: 20 MG, QD
     Route: 048
     Dates: start: 20150422
  5. ZOLPIDEM [Concomitant]
     Active Substance: ZOLPIDEM\ZOLPIDEM TARTRATE
     Indication: ADVERSE EVENT
     Dosage: 10 MG, UNK
     Route: 048
     Dates: start: 201510
  6. LITICAN                            /00690801/ [Concomitant]
     Indication: ADVERSE EVENT
     Dosage: 50 MG, UNK
     Route: 048
     Dates: start: 201510
  7. DOMPERIDON                         /00498201/ [Concomitant]
     Indication: ADVERSE EVENT
     Dosage: 10 MG, QD
     Route: 048
     Dates: start: 20150907
  8. CONTRAMAL [Concomitant]
     Active Substance: TRAMADOL HYDROCHLORIDE
     Indication: ADVERSE EVENT
     Dosage: 50 MG, UNK
     Route: 048
     Dates: start: 201510
  9. PARACETAMOL [Concomitant]
     Active Substance: ACETAMINOPHEN
     Indication: ADVERSE EVENT
  10. DICLOFENAC [Concomitant]
     Active Substance: DICLOFENAC
     Indication: ADVERSE EVENT
     Dosage: UNK
     Route: 061
     Dates: start: 20140701
  11. METOCLOPRAMIDE. [Concomitant]
     Active Substance: METOCLOPRAMIDE
     Indication: ADVERSE EVENT
     Dosage: 10 MG, UNK
     Route: 048
     Dates: start: 20150905
  12. GAVISCON                           /00237601/ [Concomitant]
     Active Substance: ALUMINUM HYDROXIDE\MAGNESIUM CARBONATE
     Indication: ADVERSE EVENT
     Dosage: 10 ML, QD
     Route: 048
     Dates: start: 201510

REACTIONS (2)
  - Intestinal anastomosis complication [Recovered/Resolved with Sequelae]
  - Malaise [Recovered/Resolved with Sequelae]

NARRATIVE: CASE EVENT DATE: 20151211
